FAERS Safety Report 4425108-6 (Version None)
Quarter: 2004Q3

REPORT INFORMATION
  Report Type: 
  Country: None (occurrence: None)
  Receive Date: 20040813
  Receipt Date: 20040802
  Transmission Date: 20050211
  Serious: Yes (Hospitalization)
  Sender: FDA-Public Use
  Company Number: FR-JNJFOC-20040602729

PATIENT
  Sex: Male
  Weight: 39 kg

DRUGS (5)
  1. EPITOMAX [Suspect]
     Route: 049
  2. EPITOMAX [Suspect]
     Indication: EPILEPSY
     Route: 049
  3. GARDENAL [Concomitant]
     Route: 065
  4. OXCARBAZEPINE [Concomitant]
     Route: 065
  5. HEPT-A-MYL [Concomitant]
     Dosage: 3 TABLETS A DAY
     Route: 065

REACTIONS (4)
  - COMA [None]
  - DEHYDRATION [None]
  - PYREXIA [None]
  - WEIGHT DECREASED [None]
